FAERS Safety Report 5363314-7 (Version None)
Quarter: 2007Q2

REPORT INFORMATION
  Report Type: 
  Country: None (occurrence: None)
  Receive Date: 20070620
  Receipt Date: 20070605
  Transmission Date: 20071010
  Serious: No
  Sender: FDA-Public Use
  Company Number: US-JNJFOC-20070504943

PATIENT
  Sex: Female
  Weight: 101.61 kg

DRUGS (3)
  1. INVEGA [Suspect]
     Indication: SCHIZOPHRENIA
     Route: 048
  2. PROZAC [Concomitant]
     Indication: DEPRESSION
     Route: 048
  3. TOPAMAX [Concomitant]

REACTIONS (2)
  - RASH [None]
  - WEIGHT DECREASED [None]
